FAERS Safety Report 15242940 (Version 1)
Quarter: 2018Q3

REPORT INFORMATION
  Report Type: Spontaneous
  Country: US (occurrence: US)
  Receive Date: 20180806
  Receipt Date: 20180806
  Transmission Date: 20181010
  Serious: No
  Sender: FDA-Public Use
  Company Number: US-GLENMARK PHARMACEUTICALS-2018GMK036155

PATIENT

DRUGS (1)
  1. DROSPIRENONE/ETHINYL ESTRADIOL [Suspect]
     Active Substance: DROSPIRENONE\ETHINYL ESTRADIOL
     Indication: CONTRACEPTION
     Dosage: UNK, OD (AT NIGHT)
     Route: 048
     Dates: start: 20180531

REACTIONS (5)
  - Abdominal pain upper [Unknown]
  - Headache [Unknown]
  - Gastrointestinal disorder [Unknown]
  - Dysmenorrhoea [Unknown]
  - Polymenorrhoea [Unknown]
